FAERS Safety Report 15045345 (Version 2)
Quarter: 2018Q4

REPORT INFORMATION
  Report Type: Spontaneous
  Country: US (occurrence: US)
  Receive Date: 20180621
  Receipt Date: 20181012
  Transmission Date: 20190204
  Serious: Yes (Other)
  Sender: FDA-Public Use
  Company Number: US-GLAXOSMITHKLINE-US2018107479

PATIENT
  Age: 78 Year
  Sex: Male

DRUGS (1)
  1. TUMS REGULAR STRENGTH [Suspect]
     Active Substance: CALCIUM CARBONATE
     Indication: GASTROOESOPHAGEAL REFLUX DISEASE
     Dosage: UNK

REACTIONS (8)
  - Cholecystectomy [Unknown]
  - Cerebrovascular accident [Recovering/Resolving]
  - Arterial disorder [Unknown]
  - Product use issue [Unknown]
  - Pain [Unknown]
  - Calcinosis [Unknown]
  - Hypertension [Recovering/Resolving]
  - Product use in unapproved indication [Unknown]
